FAERS Safety Report 7339304-1 (Version None)
Quarter: 2011Q1

REPORT INFORMATION
  Report Type: 
  Country: None (occurrence: None)
  Receive Date: 20110308
  Receipt Date: 20110302
  Transmission Date: 20110831
  Serious: Yes (Other)
  Sender: FDA-Public Use
  Company Number: US-AMGEN-QUU434878

PATIENT
  Age: 71 Year
  Sex: Female

DRUGS (4)
  1. UNSPECIFIED STEROIDS [Concomitant]
  2. NPLATE [Suspect]
     Indication: IDIOPATHIC THROMBOCYTOPENIC PURPURA
     Dosage: 4 A?G/KG, UNK
     Dates: start: 20090917, end: 20100406
  3. AZATHIOPRINE [Concomitant]
  4. RITUXIMAB [Concomitant]

REACTIONS (1)
  - LIVER FUNCTION TEST ABNORMAL [None]
